FAERS Safety Report 24529102 (Version 1)
Quarter: 2024Q4

REPORT INFORMATION
  Report Type: Spontaneous
  Country: US (occurrence: None)
  Receive Date: 20241018
  Receipt Date: 20241018
  Transmission Date: 20250115
  Serious: No
  Sender: Public
  Company Number: None

PATIENT
  Age: 57 Year
  Sex: Female

DRUGS (1)
  1. ZEJULA [Suspect]
     Active Substance: NIRAPARIB

REACTIONS (3)
  - Pruritus [None]
  - Brain fog [None]
  - Fatigue [None]

NARRATIVE: CASE EVENT DATE: 20241004
